FAERS Safety Report 11966952 (Version 2)
Quarter: 2016Q1

REPORT INFORMATION
  Report Type: Spontaneous
  Country: FR (occurrence: FR)
  Receive Date: 20160127
  Receipt Date: 20160210
  Transmission Date: 20160526
  Serious: Yes (Hospitalization)
  Sender: FDA-Public Use
  Company Number: FR-009507513-1601FRA008833

PATIENT
  Sex: Male

DRUGS (4)
  1. MABTHERA [Suspect]
     Active Substance: RITUXIMAB
     Indication: GRANULOMATOSIS WITH POLYANGIITIS
     Dosage: UNK
     Route: 041
     Dates: start: 201008, end: 201505
  2. CORTANCYL [Concomitant]
     Active Substance: PREDNISONE
     Indication: DYSPNOEA
     Dosage: 2 DF, QD
     Route: 048
     Dates: start: 20160101
  3. PANTOPRAZOLE [Concomitant]
     Active Substance: PANTOPRAZOLE SODIUM
     Indication: DYSPEPSIA
     Dosage: 20 MG, QD
     Route: 048
     Dates: start: 2010
  4. KEYTRUDA [Suspect]
     Active Substance: PEMBROLIZUMAB
     Indication: MALIGNANT MELANOMA
     Dosage: 1 DF, Q3W
     Route: 042
     Dates: start: 20150817, end: 20151019

REACTIONS (1)
  - Interstitial lung disease [Recovering/Resolving]
